FAERS Safety Report 10043770 (Version 2)
Quarter: 2014Q2

REPORT INFORMATION
  Report Type: Spontaneous
  Country: US (occurrence: US)
  Receive Date: 20140328
  Receipt Date: 20140415
  Transmission Date: 20141212
  Serious: No
  Sender: FDA-Public Use
  Company Number: US-BAYER-2014-047036

PATIENT
  Age: 41 Year
  Sex: Female
  Weight: 68.03 kg

DRUGS (2)
  1. ALEVE CAPLET [Suspect]
  2. ALEVE GELCAPS [Suspect]
     Indication: ENDOMETRIOSIS

REACTIONS (2)
  - Drug ineffective [None]
  - Therapeutic response changed [None]
